FAERS Safety Report 11944445 (Version 2)
Quarter: 2016Q1

REPORT INFORMATION
  Report Type: Spontaneous
  Country: JP (occurrence: JP)
  Receive Date: 20160125
  Receipt Date: 20160209
  Transmission Date: 20160526
  Serious: Yes (Hospitalization, Other)
  Sender: FDA-Public Use
  Company Number: JP-GLAXOSMITHKLINE-JP2016JPN007680

PATIENT
  Age: 41 Year
  Sex: Male

DRUGS (4)
  1. VALTREX [Suspect]
     Active Substance: VALACYCLOVIR HYDROCHLORIDE
     Indication: GENITAL HERPES
     Route: 048
  2. CIPROFLOXACIN HYDROCHLORIDE. [Suspect]
     Active Substance: CIPROFLOXACIN HYDROCHLORIDE
     Indication: GENITAL HERPES
     Route: 048
  3. LOXOPROFEN SODIUM HYDRATE [Suspect]
     Active Substance: LOXOPROFEN SODIUM DIHYDRATE
     Route: 065
  4. TOSUFLOXACIN TOSILATE HYDRATE [Suspect]
     Active Substance: TOSUFLOXACIN TOSYLATE
     Route: 065

REACTIONS (10)
  - Granuloma [Unknown]
  - Hepatitis acute [Unknown]
  - Hepatic enzyme increased [Recovering/Resolving]
  - Hepatitis syphilitic [Unknown]
  - Hepatic enzyme abnormal [Recovering/Resolving]
  - Pyrexia [Unknown]
  - Drug-induced liver injury [Unknown]
  - Jaundice [Unknown]
  - Malaise [Unknown]
  - Jaundice [Recovering/Resolving]
